FAERS Safety Report 5761720-X (Version None)
Quarter: 2008Q2

REPORT INFORMATION
  Report Type: 
  Country: None (occurrence: None)
  Receive Date: 20080602
  Receipt Date: 20080523
  Transmission Date: 20081010
  Serious: Yes (Other)
  Sender: FDA-Public Use
  Company Number: 08-250

PATIENT
  Age: 61 Year
  Sex: Male

DRUGS (7)
  1. NAPROXEN [Suspect]
     Indication: ARTHRALGIA
     Dosage: 500 MG, WEEKLY, ORAL
     Route: 048
     Dates: end: 20080519
  2. LITHIUM CARBONATE [Suspect]
     Indication: BIPOLAR DISORDER
     Dosage: 1200-1500MG, DAILY, ORAL
     Route: 048
     Dates: end: 20080519
  3. DIVALPROEX SODIUM [Concomitant]
  4. GABAPENTIN [Concomitant]
  5. MULTI-VITAMIN [Concomitant]
  6. ARIPIPRAZOLE [Concomitant]
  7. MEMANTINE HCL [Concomitant]

REACTIONS (8)
  - COGNITIVE DISORDER [None]
  - DISTURBANCE IN ATTENTION [None]
  - DRUG INTERACTION [None]
  - MEMORY IMPAIRMENT [None]
  - SOMNOLENCE [None]
  - SPEECH DISORDER [None]
  - THERAPEUTIC AGENT TOXICITY [None]
  - TREMOR [None]
